FAERS Safety Report 14340277 (Version 1)
Quarter: 2018Q1

REPORT INFORMATION
  Report Type: Spontaneous
  Country: US (occurrence: US)
  Receive Date: 20180101
  Receipt Date: 20180101
  Transmission Date: 20180509
  Serious: Yes (Hospitalization, Other)
  Sender: FDA-Public Use
  Company Number: US-B.I. PHARMACEUTICALS,INC./RIDGEFIELD-2017-BI-069093

PATIENT
  Age: 61 Year
  Sex: Male

DRUGS (2)
  1. PRADAXA [Suspect]
     Active Substance: DABIGATRAN ETEXILATE MESYLATE
     Indication: ATRIAL FIBRILLATION
     Route: 048
     Dates: start: 2015
  2. CARDIZEM [Concomitant]
     Active Substance: DILTIAZEM HYDROCHLORIDE
     Indication: ATRIAL FIBRILLATION
     Route: 065

REACTIONS (7)
  - Blood urine present [Recovered/Resolved]
  - Haemoptysis [Recovered/Resolved]
  - Spinal cord abscess [Recovered/Resolved]
  - Cerebrospinal fluid leakage [Recovered/Resolved]
  - Intervertebral disc compression [Recovered/Resolved]
  - Blood pressure abnormal [Recovered/Resolved]
  - Spinal cord infection [Recovered/Resolved]

NARRATIVE: CASE EVENT DATE: 201704
